FAERS Safety Report 8771892 (Version 1)
Quarter: 2012Q4

REPORT INFORMATION
  Report Type: 
  Country: DE (occurrence: FR)
  Receive Date: 20120906
  Receipt Date: 20120906
  Transmission Date: 20130627
  Serious: Yes (Hospitalization)
  Sender: FDA-Public Use
  Company Number: FR-FRI-1000038312

PATIENT
  Sex: Female

DRUGS (6)
  1. MEMANTINE [Suspect]
     Route: 048
     Dates: end: 201207
  2. TIAPRIDAL [Suspect]
     Route: 048
     Dates: end: 201207
  3. ATARAX [Suspect]
     Route: 048
     Dates: end: 201207
  4. DIPROSONE CREAM [Concomitant]
  5. KARDEGIC [Concomitant]
  6. KESTINLYO [Concomitant]

REACTIONS (3)
  - Abnormal behaviour [Recovering/Resolving]
  - Disorientation [None]
  - Refusal of treatment by patient [None]
